FAERS Safety Report 25971217 (Version 3)
Quarter: 2025Q4

REPORT INFORMATION
  Report Type: Report from Study
  Country: US (occurrence: US)
  Receive Date: 20251028
  Receipt Date: 20251224
  Transmission Date: 20260118
  Serious: Yes (Hospitalization)
  Sender: SPRINGWORKS THERAPEUTIC
  Company Number: US-SPRINGWORKS THERAPEUTICS-SW-003153

PATIENT
  Age: 69 Year
  Sex: Male

DRUGS (3)
  1. NIROGACESTAT [Suspect]
     Active Substance: NIROGACESTAT
     Indication: Tachycardia
     Dosage: 150 MILLIGRAM, BID
     Route: 061
     Dates: start: 20250721
  2. NIROGACESTAT [Suspect]
     Active Substance: NIROGACESTAT
     Dosage: 150 MILLIGRAM, QD EVERY MORNING AND IN THE EVENING EVERY OTHER DAY
     Dates: start: 20250721
  3. VERAPAMIL [Suspect]
     Active Substance: VERAPAMIL HYDROCHLORIDE
     Indication: Product used for unknown indication

REACTIONS (20)
  - Dehydration [Recovered/Resolved]
  - Diarrhoea [Recovered/Resolved]
  - Blood pressure abnormal [Unknown]
  - Insomnia [Not Recovered/Not Resolved]
  - Flatulence [Recovering/Resolving]
  - Abdominal discomfort [Not Recovered/Not Resolved]
  - Tachycardia [Recovered/Resolved]
  - Paraesthesia [Not Recovered/Not Resolved]
  - Muscular weakness [Not Recovered/Not Resolved]
  - Feeling abnormal [Not Recovered/Not Resolved]
  - Disorientation [Not Recovered/Not Resolved]
  - Abdominal pain [Not Recovered/Not Resolved]
  - Dizziness [Not Recovered/Not Resolved]
  - Fatigue [Not Recovered/Not Resolved]
  - Nausea [Recovering/Resolving]
  - Headache [Not Recovered/Not Resolved]
  - Diarrhoea [Not Recovered/Not Resolved]
  - Product dose omission issue [Unknown]
  - Product dose omission in error [Unknown]
  - Inappropriate schedule of product administration [Unknown]

NARRATIVE: CASE EVENT DATE: 20250727
